FAERS Safety Report 13644603 (Version 1)
Quarter: 2017Q2

REPORT INFORMATION
  Report Type: Spontaneous
  Country: US (occurrence: US)
  Receive Date: 20170612
  Receipt Date: 20170612
  Transmission Date: 20170830
  Serious: No
  Sender: FDA-Public Use
  Company Number: US-ROCHE-1289549

PATIENT
  Sex: Male

DRUGS (2)
  1. XELODA [Suspect]
     Active Substance: CAPECITABINE
     Indication: RECTAL CANCER
     Dosage: 3 TAB EVERY MORNING AND 2 TAB BY MOUTH EVERY EVENING FOR 14 DAYS ON AND 7 DAYS OFF
     Route: 048
     Dates: start: 20130907
  2. ACETAMINOPHEN. [Concomitant]
     Active Substance: ACETAMINOPHEN

REACTIONS (6)
  - Nausea [Unknown]
  - Scratch [Unknown]
  - Dry skin [Unknown]
  - Pain [Unknown]
  - Pain of skin [Unknown]
  - Palmar-plantar erythrodysaesthesia syndrome [Not Recovered/Not Resolved]
